FAERS Safety Report 18502174 (Version 1)
Quarter: 2020Q4

REPORT INFORMATION
  Report Type: Report from Study
  Country: US (occurrence: US)
  Receive Date: 20201113
  Receipt Date: 20201113
  Transmission Date: 20210114
  Serious: Yes (Other)
  Sender: FDA-Public Use
  Company Number: NVSC2020US298214

PATIENT
  Sex: Female

DRUGS (2)
  1. KISQALI FEMARA CO-PACK [Suspect]
     Active Substance: LETROZOLE\RIBOCICLIB
     Indication: BREAST CANCER
     Dosage: 400 MG, QD (FOR 21 DAYS, THEN 7 DAYS OFF)
     Route: 048
     Dates: start: 201807
  2. KISQALI FEMARA CO-PACK [Suspect]
     Active Substance: LETROZOLE\RIBOCICLIB
     Dosage: 200 MG, QD (FOR 21 DAYS, THEN 7 DAYS OFF)
     Route: 048

REACTIONS (1)
  - Neutropenia [Unknown]
